FAERS Safety Report 14873576 (Version 2)
Quarter: 2018Q2

REPORT INFORMATION
  Report Type: Report from Study
  Country: US (occurrence: US)
  Receive Date: 20180510
  Receipt Date: 20180621
  Transmission Date: 20180711
  Serious: Yes (Hospitalization, Other)
  Sender: FDA-Public Use
  Company Number: PHEH2018US017156

PATIENT
  Sex: Female
  Weight: 85.72 kg

DRUGS (1)
  1. COSENTYX [Suspect]
     Active Substance: SECUKINUMAB
     Indication: ANKYLOSING SPONDYLITIS
     Dosage: 150 MG, QMO
     Route: 058
     Dates: start: 201712

REACTIONS (3)
  - Road traffic accident [Unknown]
  - Inappropriate schedule of drug administration [Unknown]
  - Thrombosis [Unknown]
